FAERS Safety Report 6725059-8 (Version None)
Quarter: 2010Q2

REPORT INFORMATION
  Report Type: 
  Country: None (occurrence: None)
  Receive Date: 20100514
  Receipt Date: 20100504
  Transmission Date: 20101027
  Serious: No
  Sender: FDA-Public Use
  Company Number: 2010BI003966

PATIENT
  Sex: Female

DRUGS (1)
  1. TYSABRI [Suspect]
     Indication: MULTIPLE SCLEROSIS
     Route: 042
     Dates: start: 20090713

REACTIONS (11)
  - BALANCE DISORDER [None]
  - DRUG INEFFECTIVE [None]
  - GAIT DISTURBANCE [None]
  - HYPOAESTHESIA [None]
  - JOINT SWELLING [None]
  - MICTURITION URGENCY [None]
  - MUSCLE SPASMS [None]
  - PAIN IN EXTREMITY [None]
  - TINNITUS [None]
  - URINARY TRACT INFECTION [None]
  - VOMITING [None]
